FAERS Safety Report 6360211-5 (Version None)
Quarter: 2009Q3

REPORT INFORMATION
  Report Type: 
  Country: None (occurrence: None)
  Receive Date: 20090917
  Receipt Date: 20090908
  Transmission Date: 20100115
  Serious: No
  Sender: FDA-Public Use
  Company Number: US-B.I. PHARMACEUTICALS,INC./RIDGEFIELD-2009-BP-10576BP

PATIENT
  Age: 25 Year
  Sex: Male

DRUGS (3)
  1. CLONIDINE HCL [Suspect]
     Indication: HYPERTENSION
     Route: 048
  2. TRILEPTAL [Concomitant]
     Indication: EPILEPSY
     Dosage: 900 MG
     Route: 048
  3. LORAZEPAM [Concomitant]
     Indication: PSYCHOTIC DISORDER

REACTIONS (1)
  - DRUG INEFFECTIVE [None]
